FAERS Safety Report 10968176 (Version 1)
Quarter: 2015Q1

REPORT INFORMATION
  Report Type: Spontaneous
  Country: GB (occurrence: GB)
  Receive Date: 20150330
  Receipt Date: 20150330
  Transmission Date: 20150721
  Serious: Yes (Hospitalization)
  Sender: FDA-Public Use
  Company Number: PHFR2015GB002501

PATIENT
  Sex: Female

DRUGS (3)
  1. DESFERAL [Suspect]
     Active Substance: DEFEROXAMINE MESYLATE
     Indication: PRODUCT USED FOR UNKNOWN INDICATION
     Dosage: QW5
     Route: 058
     Dates: start: 20150223
  2. WATER FOR INJECTION [Suspect]
     Active Substance: WATER
     Indication: PRODUCT USED FOR UNKNOWN INDICATION
     Dosage: 40 ML, QW5
     Route: 058
     Dates: start: 20150223
  3. SODIUM CHLORIDE ^BAXTER^ [Suspect]
     Active Substance: SODIUM CHLORIDE
     Indication: PRODUCT USED FOR UNKNOWN INDICATION
     Dosage: 40 ML, QW5
     Route: 058
     Dates: start: 20150223

REACTIONS (4)
  - Oropharyngeal pain [Unknown]
  - Viral infection [Unknown]
  - Ear pain [Unknown]
  - Feeling abnormal [Unknown]

NARRATIVE: CASE EVENT DATE: 20150226
